FAERS Safety Report 10268194 (Version 1)
Quarter: 2014Q2

REPORT INFORMATION
  Report Type: Spontaneous
  Country: US (occurrence: None)
  Receive Date: 20140623
  Receipt Date: 20140623
  Transmission Date: 20141212
  Serious: Yes (Life-Threatening, Hospitalization)
  Sender: FDA-Public Use
  Company Number: None

PATIENT
  Age: 70 Year
  Sex: Male
  Weight: 109.6 kg

DRUGS (1)
  1. HEPARIN [Suspect]

REACTIONS (2)
  - Thrombocytopenia [None]
  - Deep vein thrombosis [None]
